FAERS Safety Report 18898806 (Version 1)
Quarter: 2021Q1

REPORT INFORMATION
  Report Type: Spontaneous
  Country: IT (occurrence: IT)
  Receive Date: 20210216
  Receipt Date: 20210216
  Transmission Date: 20210420
  Serious: Yes (Hospitalization)
  Sender: FDA-Public Use
  Company Number: IT-GRIFOLS-BIG0013236

PATIENT
  Age: 85 Year
  Sex: Female
  Weight: 90 kg

DRUGS (1)
  1. 20% SOLUTION FOR ENDOVENOUS INFUSION (HUMAN SERUM ALBUMIN) [Suspect]
     Active Substance: ALBUMIN HUMAN
     Indication: HYPOALBUMINAEMIA
     Dosage: 10 GRAM, QD
     Route: 041
     Dates: start: 20210130, end: 20210130

REACTIONS (5)
  - Asthenia [Recovered/Resolved with Sequelae]
  - Hyperhidrosis [Recovered/Resolved with Sequelae]
  - Bradycardia [Recovered/Resolved with Sequelae]
  - Dyspepsia [Recovered/Resolved with Sequelae]
  - Hypotension [Recovered/Resolved with Sequelae]

NARRATIVE: CASE EVENT DATE: 20210130
